FAERS Safety Report 8130185-5 (Version None)
Quarter: 2012Q1

REPORT INFORMATION
  Report Type: 
  Country: None (occurrence: None)
  Receive Date: 20120210
  Receipt Date: 20120210
  Transmission Date: 20120608
  Serious: Yes (Hospitalization, Other)
  Sender: FDA-Public Use
  Company Number: JP-ABBOTT-11P-087-0730313-00

PATIENT
  Sex: Male
  Weight: 57.84 kg

DRUGS (9)
  1. STUDY DRUG [Suspect]
     Route: 048
     Dates: start: 20110204, end: 20110401
  2. CLARITHROMYCIN [Suspect]
     Indication: SINUSITIS
     Dates: start: 20110325, end: 20110329
  3. BETAMETHASONE SODIUM PHOSPHATE [Concomitant]
     Indication: RHINITIS ALLERGIC
     Route: 062
     Dates: start: 20050101
  4. ALENDRONATE SODIUM [Concomitant]
     Indication: OSTEOPOROSIS
     Route: 048
     Dates: start: 20100116
  5. PREDNISOLONE [Concomitant]
     Indication: RHEUMATOID ARTHRITIS
     Route: 048
     Dates: start: 20100626
  6. STUDY DRUG [Suspect]
     Indication: RHEUMATOID ARTHRITIS
     Route: 048
     Dates: start: 20091219, end: 20110203
  7. ISONIAZID [Concomitant]
     Indication: ANTIBIOTIC PROPHYLAXIS
     Route: 048
     Dates: start: 20050122, end: 20110421
  8. LOXOPROFEN [Concomitant]
     Indication: RHEUMATOID ARTHRITIS
     Route: 048
     Dates: start: 20071205, end: 20110414
  9. ALFAROL [Concomitant]
     Indication: OSTEOPOROSIS
     Route: 048
     Dates: start: 20071205

REACTIONS (25)
  - GASTROINTESTINAL ULCER [None]
  - VIRAL INFECTION [None]
  - LYMPHOCYTE MORPHOLOGY ABNORMAL [None]
  - C-REACTIVE PROTEIN ABNORMAL [None]
  - PNEUMONIA [None]
  - RASH [None]
  - PYREXIA [None]
  - DECREASED APPETITE [None]
  - WHITE BLOOD CELL COUNT ABNORMAL [None]
  - PAIN [None]
  - ORAL CANDIDIASIS [None]
  - GASTRIC ULCER [None]
  - BACTERIAL INFECTION [None]
  - PSEUDOMONAS INFECTION [None]
  - HERPES ZOSTER [None]
  - TINEA PEDIS [None]
  - STAPHYLOCOCCAL INFECTION [None]
  - RHINITIS [None]
  - COUGH [None]
  - HEADACHE [None]
  - CHRONIC SINUSITIS [None]
  - ANAEMIA [None]
  - PLEURAL EFFUSION [None]
  - PRURITUS [None]
  - BLISTER [None]
